FAERS Safety Report 7002761-4 (Version None)
Quarter: 2010Q3

REPORT INFORMATION
  Report Type: 
  Country: None (occurrence: None)
  Receive Date: 20100920
  Receipt Date: 20100330
  Transmission Date: 20110219
  Serious: Yes (Hospitalization, Other)
  Sender: FDA-Public Use
  Company Number: US-ASTRAZENECA-2006UW07577

PATIENT
  Age: 40 Year
  Sex: Male
  Weight: 60.3 kg

DRUGS (21)
  1. SEROQUEL [Suspect]
     Indication: INSOMNIA
     Dosage: 25-100MG DAILY
     Route: 048
     Dates: start: 19980101, end: 20030101
  2. SEROQUEL [Suspect]
     Indication: ANXIETY
     Dosage: 25-100MG DAILY
     Route: 048
     Dates: start: 19980101, end: 20030101
  3. SEROQUEL [Suspect]
     Dosage: STRENGTH-25MG, 100 MG. DOSE-25MG-300MG DAILY
     Route: 048
     Dates: start: 19980202
  4. SEROQUEL [Suspect]
     Dosage: STRENGTH-25MG, 100 MG. DOSE-25MG-300MG DAILY
     Route: 048
     Dates: start: 19980202
  5. SEROQUEL [Suspect]
     Route: 048
     Dates: start: 20061026
  6. SEROQUEL [Suspect]
     Route: 048
     Dates: start: 20061026
  7. ZYPREXA [Suspect]
     Dates: start: 19970101
  8. ZYPREXA [Suspect]
     Dates: start: 19970404
  9. RISPERDAL [Concomitant]
     Dates: start: 19970101
  10. XANAX [Concomitant]
     Indication: ANXIETY
     Dosage: STRENGTH 0.5MG, 1MG, 1.5MG DOSE 0.5MG-4.5MG
     Route: 048
     Dates: start: 19980618
  11. KLONOPIN [Concomitant]
     Dates: start: 19980618
  12. VENLAFAXINE HCL [Concomitant]
     Dates: start: 19980805
  13. INDERAL [Concomitant]
     Route: 048
     Dates: start: 19980618
  14. BUSPAR [Concomitant]
     Dates: start: 19970404
  15. PROZAC [Concomitant]
     Route: 048
     Dates: start: 19990329
  16. PROZAC [Concomitant]
     Dates: start: 20061026
  17. DILANTIN [Concomitant]
     Dosage: STRENGTH 100MG, 300MG DOSE 100MG-400MG
     Route: 048
     Dates: start: 20041015
  18. DILANTIN [Concomitant]
     Route: 042
     Dates: start: 20060417
  19. DIAZEPAM [Concomitant]
     Route: 048
     Dates: start: 20060419
  20. WELLBUTRIN [Concomitant]
     Dosage: 150-300MG DAILY
     Dates: start: 20030816
  21. AMBIEN [Concomitant]
     Route: 048
     Dates: start: 20061026

REACTIONS (4)
  - EYE DISORDER [None]
  - HYPERGLYCAEMIA [None]
  - PANCREATITIS [None]
  - VISION BLURRED [None]
